FAERS Safety Report 13593047 (Version 1)
Quarter: 2017Q2

REPORT INFORMATION
  Report Type: Report from Study
  Country: CO (occurrence: CO)
  Receive Date: 20170530
  Receipt Date: 20170530
  Transmission Date: 20170830
  Serious: Yes (Death, Hospitalization)
  Sender: FDA-Public Use
  Company Number: PHHY2017CO036756

PATIENT
  Age: 87 Year
  Sex: Male
  Weight: 40 kg

DRUGS (1)
  1. EXJADE [Suspect]
     Active Substance: DEFERASIROX
     Indication: IRON OVERLOAD
     Dosage: 500 MG, BID (EVERY 12 HOURS)
     Route: 048
     Dates: start: 20170217

REACTIONS (8)
  - Speech disorder [Unknown]
  - Chills [Unknown]
  - Iron overload [Recovered/Resolved]
  - Death [Fatal]
  - Hypotension [Unknown]
  - Eating disorder [Unknown]
  - General physical health deterioration [Unknown]
  - Disease recurrence [Recovered/Resolved]

NARRATIVE: CASE EVENT DATE: 20170219
